FAERS Safety Report 16221445 (Version 2)
Quarter: 2019Q3

REPORT INFORMATION
  Report Type: Spontaneous
  Country: US (occurrence: US)
  Receive Date: 20190422
  Receipt Date: 20190703
  Transmission Date: 20191004
  Serious: No
  Sender: FDA-Public Use
  Company Number: US-TEVA-2019-US-1031229

PATIENT
  Age: 53 Year
  Sex: Male
  Weight: 92 kg

DRUGS (11)
  1. GABAPENTIN. [Concomitant]
     Active Substance: GABAPENTIN
  2. DEPAKOTE [Concomitant]
     Active Substance: DIVALPROEX SODIUM
  3. METOPROLOL. [Concomitant]
     Active Substance: METOPROLOL
  4. FAMOTIDINE. [Concomitant]
     Active Substance: FAMOTIDINE
  5. HALDOL DECANOATE [Concomitant]
     Active Substance: HALOPERIDOL DECANOATE
  6. AUSTEDO [Suspect]
     Active Substance: DEUTETRABENAZINE
     Indication: TARDIVE DYSKINESIA
     Dates: start: 20190227
  7. BUSPAR [Concomitant]
     Active Substance: BUSPIRONE HYDROCHLORIDE
     Dosage: 7.5 MG
  8. TYLENOL [Concomitant]
     Active Substance: ACETAMINOPHEN
  9. SIMVASTATIN. [Concomitant]
     Active Substance: SIMVASTATIN
  10. BUSPAR [Concomitant]
     Active Substance: BUSPIRONE HYDROCHLORIDE
     Dosage: 15 MG
  11. ASPIRIN. [Concomitant]
     Active Substance: ASPIRIN

REACTIONS (1)
  - Violence-related symptom [Recovered/Resolved]

NARRATIVE: CASE EVENT DATE: 20190321
